FAERS Safety Report 24705430 (Version 1)
Quarter: 2024Q4

REPORT INFORMATION
  Report Type: Spontaneous
  Country: RO (occurrence: RO)
  Receive Date: 20241206
  Receipt Date: 20241206
  Transmission Date: 20250114
  Serious: Yes (Hospitalization, Other)
  Sender: RANBAXY
  Company Number: RO-SUN PHARMACEUTICAL INDUSTRIES LTD-2024R1-483048

PATIENT
  Age: 40 Year
  Sex: Male

DRUGS (6)
  1. RISPERIDONE [Suspect]
     Active Substance: RISPERIDONE
     Indication: Encephalitis autoimmune
     Dosage: 1.5 MILLIGRAM, DAILY
     Route: 065
  2. SPIRONOLACTONE [Suspect]
     Active Substance: SPIRONOLACTONE
     Indication: Encephalitis autoimmune
     Dosage: 25 MILLIGRAM, DAILY
     Route: 065
  3. VALPROIC ACID [Suspect]
     Active Substance: VALPROIC ACID
     Indication: Encephalitis autoimmune
     Dosage: 2.5 GRAM, DAILY
     Route: 065
  4. ENOXAPARIN SODIUM [Suspect]
     Active Substance: ENOXAPARIN SODIUM
     Indication: Encephalitis autoimmune
     Dosage: UNK 0.6 U.I. TWICE DAILY
     Route: 058
  5. DIETARY SUPPLEMENT [Suspect]
     Active Substance: DIETARY SUPPLEMENT
     Indication: Encephalitis autoimmune
     Dosage: 4 DOSAGE FORM, DAILY
     Route: 065
  6. FERROUS SULFATE [Suspect]
     Active Substance: FERROUS SULFATE
     Indication: Encephalitis autoimmune
     Dosage: 4 DOSAGE FORM, DAILY
     Route: 065

REACTIONS (2)
  - Therapeutic response decreased [Unknown]
  - Condition aggravated [Unknown]
